FAERS Safety Report 14343805 (Version 2)
Quarter: 2018Q1

REPORT INFORMATION
  Report Type: Spontaneous
  Country: JP (occurrence: JP)
  Receive Date: 20180102
  Receipt Date: 20180124
  Transmission Date: 20180509
  Serious: Yes (Congenital Anomaly, Other)
  Sender: FDA-Public Use
  Company Number: JP-ABBVIE-18P-087-2208862-00

PATIENT
  Sex: Female

DRUGS (2)
  1. PHENOBARBITAL. [Suspect]
     Active Substance: PHENOBARBITAL
     Indication: MATERNAL EXPOSURE TIMING UNSPECIFIED
     Route: 064
  2. VALPROATE SODIUM. [Suspect]
     Active Substance: VALPROATE SODIUM
     Indication: MATERNAL EXPOSURE TIMING UNSPECIFIED
     Route: 064

REACTIONS (14)
  - Congenital nail disorder [Unknown]
  - Macrotia [Unknown]
  - Dysmorphism [Unknown]
  - Abnormal palmar/plantar creases [Unknown]
  - Foetal exposure during pregnancy [Unknown]
  - Skull malformation [Unknown]
  - Psychomotor retardation [Unknown]
  - Benign congenital hypotonia [Unknown]
  - Congenital anomaly [Unknown]
  - Nipple disorder [Unknown]
  - Gait inability [Unknown]
  - Strabismus [Unknown]
  - Electroencephalogram abnormal [Unknown]
  - Deafness [Unknown]
